FAERS Safety Report 8438925-2 (Version None)
Quarter: 2012Q2

REPORT INFORMATION
  Report Type: 
  Country: None (occurrence: None)
  Receive Date: 20120615
  Receipt Date: 20120606
  Transmission Date: 20120825
  Serious: Yes (Other)
  Sender: FDA-Public Use
  Company Number: CA-JNJFOC-20120514965

PATIENT
  Sex: Male
  Weight: 63 kg

DRUGS (4)
  1. PERCOCET [Concomitant]
     Route: 065
  2. PERCOCET [Concomitant]
     Indication: BACK PAIN
     Dosage: INITIAL PRESCRIPTION 3 PER DAY AS OF LAST WEEK DOSE DECREASED TO 1 1/2 TABLET PER DAY
     Route: 065
  3. REMICADE [Suspect]
     Indication: CROHN'S DISEASE
     Dosage: STARTED APPROXIMATELY 4 YEARS AGO
     Route: 042
  4. REMICADE [Suspect]
     Route: 042
     Dates: start: 20090101

REACTIONS (4)
  - GINGIVAL BLEEDING [None]
  - MOUTH ULCERATION [None]
  - ORAL CANDIDIASIS [None]
  - SYNCOPE [None]
